FAERS Safety Report 17650448 (Version 1)
Quarter: 2020Q2

REPORT INFORMATION
  Report Type: Report from Study
  Country: DE (occurrence: DE)
  Receive Date: 20200409
  Receipt Date: 20200409
  Transmission Date: 20200713
  Serious: Yes (Other)
  Sender: FDA-Public Use
  Company Number: DE-TEVA-2020-DE-1219411

PATIENT
  Age: 54 Year
  Sex: Female

DRUGS (4)
  1. EUTHYROX [Concomitant]
     Active Substance: LEVOTHYROXINE SODIUM
     Route: 065
  2. ENALOPRIL [Concomitant]
     Indication: HYPERTENSION
     Route: 065
  3. ESCITALOPRAM [Suspect]
     Active Substance: ESCITALOPRAM OXALATE
     Indication: MAJOR DEPRESSION
     Dosage: 20 MILLIGRAM DAILY; SHE HAD BEEN RECEIVING ESCITALOPRAM FOR }10YEARS
     Route: 065
  4. MIRTAZAPINE. [Suspect]
     Active Substance: MIRTAZAPINE
     Indication: MAJOR DEPRESSION
     Dosage: 30 MILLIGRAM DAILY;
     Route: 065

REACTIONS (1)
  - Drug-induced liver injury [Unknown]
